FAERS Safety Report 6252353-X (Version None)
Quarter: 2009Q3

REPORT INFORMATION
  Report Type: 
  Country: None (occurrence: None)
  Receive Date: 20090701
  Receipt Date: 20090625
  Transmission Date: 20100115
  Serious: Yes (Hospitalization)
  Sender: FDA-Public Use
  Company Number: US-CELGENEUS-163-21880-09031095

PATIENT
  Sex: Male

DRUGS (2)
  1. REVLIMID [Suspect]
     Indication: MULTIPLE MYELOMA
     Route: 048
     Dates: start: 20071101
  2. REVLIMID [Suspect]
     Dosage: 10-25MG
     Route: 048
     Dates: start: 20070401, end: 20071101

REACTIONS (1)
  - ATRIAL FIBRILLATION [None]
